FAERS Safety Report 14769380 (Version 1)
Quarter: 2018Q2

REPORT INFORMATION
  Report Type: Spontaneous
  Country: US (occurrence: US)
  Receive Date: 20180411
  Receipt Date: 20180411
  Transmission Date: 20180711
  Serious: Yes (Other)
  Sender: FDA-Public Use
  Company Number: None

PATIENT
  Age: 48 Year

DRUGS (2)
  1. BUPRENORPHINE -NALOXONE 2MG/0.5MG TABLETS [Suspect]
     Active Substance: BUPRENORPHINE HYDROCHLORIDE\NALOXONE HYDROCHLORIDE
     Indication: DRUG USE DISORDER
     Route: 060
     Dates: start: 20170725, end: 20170825
  2. SUBOXONE [Concomitant]
     Active Substance: BUPRENORPHINE HYDROCHLORIDE\NALOXONE HYDROCHLORIDE

REACTIONS (8)
  - Drug ineffective [None]
  - Tremor [None]
  - Headache [None]
  - Tachycardia [None]
  - Migraine [None]
  - Nausea [None]
  - Product physical issue [None]
  - Hyperhidrosis [None]

NARRATIVE: CASE EVENT DATE: 20170728
